FAERS Safety Report 23243027 (Version 1)
Quarter: 2023Q4

REPORT INFORMATION
  Report Type: Spontaneous
  Country: BR (occurrence: BR)
  Receive Date: 20231130
  Receipt Date: 20231130
  Transmission Date: 20240110
  Serious: Yes (Other)
  Sender: FDA-Public Use
  Company Number: BR-AMGEN-BRASP2023208662

PATIENT

DRUGS (2)
  1. FILGRASTIM [Suspect]
     Active Substance: FILGRASTIM
     Indication: Haematopoietic stem cell mobilisation
     Dosage: 10 MICROGRAM/KILOGRAM, QD (ON DAY 5.)
     Route: 065
  2. CYTARABINE [Concomitant]
     Active Substance: CYTARABINE
     Indication: Lymphoma
     Dosage: 0.4 GRAM PER SQUARE METRE, BID (ON DAYS 1 AND 2.)
     Route: 042

REACTIONS (4)
  - Blood stem cell harvest failure [Unknown]
  - Disease complication [Unknown]
  - Platelet transfusion [Unknown]
  - Red blood cell transfusion [Unknown]
